FAERS Safety Report 4677790-6 (Version None)
Quarter: 2005Q2

REPORT INFORMATION
  Report Type: 
  Country: None (occurrence: None)
  Receive Date: 20050531
  Receipt Date: 20050520
  Transmission Date: 20051028
  Serious: Yes (Hospitalization)
  Sender: FDA-Public Use
  Company Number: US-JNJFOC-20041104000

PATIENT
  Sex: Female
  Weight: 98.43 kg

DRUGS (4)
  1. TOPAMAX [Suspect]
     Route: 049
     Dates: end: 20041111
  2. TOPAMAX [Suspect]
     Route: 049
     Dates: end: 20041111
  3. TOPAMAX [Suspect]
     Indication: MIGRAINE
     Dosage: DOSAGE WAS TITRATED UP TO 75 MG
     Route: 049
     Dates: end: 20041111
  4. VITAMINS [Concomitant]

REACTIONS (6)
  - DIZZINESS [None]
  - FEELING ABNORMAL [None]
  - HYPOTENSION [None]
  - INCOHERENT [None]
  - PARAESTHESIA [None]
  - SYNCOPE [None]
